FAERS Safety Report 23789328 (Version 1)
Quarter: 2024Q2

REPORT INFORMATION
  Report Type: Report from Study
  Country: US (occurrence: US)
  Receive Date: 20240426
  Receipt Date: 20240426
  Transmission Date: 20240716
  Serious: Yes (Hospitalization)
  Sender: FDA-Public Use
  Company Number: US-ARGENX-2024-ARGX-US002752

PATIENT

DRUGS (1)
  1. VYVGART [Suspect]
     Active Substance: EFGARTIGIMOD ALFA-FCAB
     Indication: Myasthenia gravis
     Dosage: 770 MG, 1/WEEK, 400MG/20ML
     Route: 042
     Dates: start: 202303

REACTIONS (3)
  - Dysphagia [Unknown]
  - Feeding disorder [Unknown]
  - Weight decreased [Unknown]
